FAERS Safety Report 7534225-3 (Version None)
Quarter: 2011Q2

REPORT INFORMATION
  Report Type: 
  Country: None (occurrence: None)
  Receive Date: 20110608
  Receipt Date: 20061215
  Transmission Date: 20111010
  Serious: Yes (Other)
  Sender: FDA-Public Use
  Company Number: PHMT2006CA00844

PATIENT
  Sex: Male

DRUGS (6)
  1. SANDOSTATIN LAR [Suspect]
     Indication: CARCINOID TUMOUR
     Dosage: 20 MG, QMO
     Dates: start: 20060307
  2. ASPIRIN [Concomitant]
     Dosage: UNK
  3. FLOMAX [Concomitant]
     Indication: BENIGN PROSTATIC HYPERPLASIA
     Dosage: UNK
  4. LOMOTIL [Concomitant]
     Dosage: UNK
  5. SANDOSTATIN [Suspect]
     Indication: CARCINOID TUMOUR
     Dosage: UNK, UNK
     Route: 058
     Dates: start: 20051017
  6. PROSCAR [Concomitant]
     Indication: BENIGN PROSTATIC HYPERPLASIA
     Dosage: UNK

REACTIONS (4)
  - BACK PAIN [None]
  - URINARY TRACT OBSTRUCTION [None]
  - RENAL IMPAIRMENT [None]
  - CYSTITIS [None]
